FAERS Safety Report 11091750 (Version 1)
Quarter: 2015Q2

REPORT INFORMATION
  Report Type: Spontaneous
  Country: US (occurrence: US)
  Receive Date: 20150505
  Receipt Date: 20150505
  Transmission Date: 20150821
  Serious: No
  Sender: FDA-Public Use
  Company Number: US-ASTRAZENECA-2015SE39551

PATIENT
  Age: 21158 Day
  Sex: Female
  Weight: 62.6 kg

DRUGS (3)
  1. NORCO [Concomitant]
     Active Substance: ACETAMINOPHEN\HYDROCODONE BITARTRATE
     Indication: PAIN
     Dates: start: 201408
  2. METHOCARBAM [Concomitant]
     Indication: MUSCLE RELAXANT THERAPY
  3. FASLODEX [Suspect]
     Active Substance: FULVESTRANT
     Indication: BREAST CANCER
     Route: 030
     Dates: start: 20150422

REACTIONS (3)
  - Back pain [Unknown]
  - Lymph node pain [Unknown]
  - Insomnia [Unknown]

NARRATIVE: CASE EVENT DATE: 20150422
